FAERS Safety Report 10673087 (Version 2)
Quarter: 2015Q1

REPORT INFORMATION
  Report Type: Spontaneous
  Country: US (occurrence: US)
  Receive Date: 20141223
  Receipt Date: 20150114
  Transmission Date: 20150720
  Serious: Yes (Hospitalization)
  Sender: FDA-Public Use
  Company Number: US-ROCHE-1510379

PATIENT
  Age: 10 Year
  Sex: Male

DRUGS (7)
  1. LOSARTAN [Concomitant]
     Active Substance: LOSARTAN
     Indication: HYPERTENSION
     Route: 048
  2. FOLIC ACID. [Concomitant]
     Active Substance: FOLIC ACID
     Indication: TAKAYASU^S ARTERITIS
     Route: 048
  3. RITUXAN [Suspect]
     Active Substance: RITUXIMAB
     Indication: TAKAYASU^S ARTERITIS
     Route: 042
  4. SOLU-MEDROL [Concomitant]
     Active Substance: METHYLPREDNISOLONE SODIUM SUCCINATE
     Indication: PREMEDICATION
     Route: 042
  5. BENADRYL [Concomitant]
     Active Substance: DIPHENHYDRAMINE HYDROCHLORIDE
     Indication: PREMEDICATION
     Route: 011
  6. REMICADE [Suspect]
     Active Substance: INFLIXIMAB
     Indication: TAKAYASU^S ARTERITIS
     Route: 042
     Dates: start: 20140315, end: 20140710
  7. METHOTREXATE [Concomitant]
     Active Substance: METHOTREXATE
     Indication: TAKAYASU^S ARTERITIS
     Route: 048

REACTIONS (7)
  - Drug dose omission [Unknown]
  - Headache [Recovered/Resolved]
  - Nausea [Recovered/Resolved]
  - Vomiting [Recovered/Resolved]
  - Arteritis [Unknown]
  - Erythema [Recovered/Resolved]
  - Hypertension [Recovered/Resolved]

NARRATIVE: CASE EVENT DATE: 20140710
